FAERS Safety Report 6948681-2 (Version None)
Quarter: 2010Q3

REPORT INFORMATION
  Report Type: 
  Country: None (occurrence: None)
  Receive Date: 20100828
  Receipt Date: 20091110
  Transmission Date: 20110219
  Serious: No
  Sender: FDA-Public Use
  Company Number: US-ABBOTT-09P-163-0607793-00

PATIENT
  Sex: Male
  Weight: 93.07 kg

DRUGS (4)
  1. NIASPAN [Suspect]
     Indication: HIGH DENSITY LIPOPROTEIN DECREASED
     Dates: start: 20070101
  2. NIASPAN [Suspect]
     Dosage: AT BEDTIME
  3. NIASPAN [Suspect]
  4. WATER PILL [Concomitant]
     Indication: BLOOD PRESSURE

REACTIONS (2)
  - FLUSHING [None]
  - HOT FLUSH [None]
